FAERS Safety Report 25947703 (Version 1)
Quarter: 2025Q4

REPORT INFORMATION
  Report Type: Spontaneous
  Country: US (occurrence: US)
  Receive Date: 20251022
  Receipt Date: 20251022
  Transmission Date: 20260118
  Serious: Yes (Life-Threatening, Hospitalization, Other)
  Sender: LUPIN
  Company Number: US-LUPIN PHARMACEUTICALS INC.-2025-09444

PATIENT
  Age: 39 Year
  Sex: Male

DRUGS (1)
  1. DEXTROAMPHETAMINE [Suspect]
     Active Substance: DEXTROAMPHETAMINE
     Indication: Fatigue
     Dosage: 120 MILLIGRAM, QD, PRESCRIBED DOSE WAS 30MG DAILY
     Route: 065

REACTIONS (4)
  - Dilated cardiomyopathy [Recovered/Resolved]
  - Atrial fibrillation [Recovered/Resolved]
  - Heart failure with reduced ejection fraction [Recovered/Resolved]
  - Extra dose administered [Unknown]
